FAERS Safety Report 23913764 (Version 5)
Quarter: 2024Q4

REPORT INFORMATION
  Report Type: Report from Study
  Country: JP (occurrence: JP)
  Receive Date: 20240529
  Receipt Date: 20241028
  Transmission Date: 20250114
  Serious: Yes (Life-Threatening)
  Sender: ROCHE
  Company Number: JP-CHUGAI-2024017596

PATIENT
  Age: 85 Year
  Sex: Female
  Weight: 45.1 kg

DRUGS (15)
  1. HEMLIBRA [Suspect]
     Active Substance: EMICIZUMAB-KXWH
     Indication: Acquired haemophilia
     Dosage: 1.5 MILLIGRAM, ONCE/WEEK
     Route: 058
     Dates: start: 20240410, end: 20240410
  2. HEMLIBRA [Suspect]
     Active Substance: EMICIZUMAB-KXWH
     Dosage: 1.5 MILLIGRAM, ONCE/WEEK
     Route: 058
     Dates: start: 20240411, end: 20240411
  3. HEMLIBRA [Suspect]
     Active Substance: EMICIZUMAB-KXWH
     Dosage: 1.5 MILLIGRAM, ONCE/WEEK
     Route: 058
     Dates: start: 20240412, end: 20240424
  4. PREDNISOLONE [Suspect]
     Active Substance: PREDNISOLONE
     Indication: Product used for unknown indication
     Dosage: TAPERING FROM 30 MG/DAY
     Route: 050
     Dates: start: 20240404, end: 20240425
  5. PREDNISOLONE [Suspect]
     Active Substance: PREDNISOLONE
     Route: 050
     Dates: start: 20240426, end: 20240502
  6. PREDNISOLONE [Suspect]
     Active Substance: PREDNISOLONE
     Route: 050
     Dates: start: 20240503, end: 20240509
  7. PREDNISOLONE [Suspect]
     Active Substance: PREDNISOLONE
     Route: 050
     Dates: start: 20240510, end: 20240516
  8. PREDNISOLONE [Suspect]
     Active Substance: PREDNISOLONE
     Route: 050
     Dates: start: 20240517, end: 20240523
  9. PREDNISOLONE [Suspect]
     Active Substance: PREDNISOLONE
     Route: 050
     Dates: start: 20240524, end: 20240530
  10. PREDNISOLONE [Suspect]
     Active Substance: PREDNISOLONE
     Route: 050
     Dates: start: 20240531, end: 20240606
  11. PREDNISOLONE [Suspect]
     Active Substance: PREDNISOLONE
     Route: 050
     Dates: start: 20240607
  12. LANSOPRAZOLE [Concomitant]
     Active Substance: LANSOPRAZOLE
     Dosage: UNK
     Route: 065
     Dates: start: 20240404
  13. ALFACALCIDOL [Concomitant]
     Active Substance: ALFACALCIDOL
     Dosage: UNK
     Route: 050
     Dates: start: 20240515
  14. ASPIRIN [Concomitant]
     Active Substance: ASPIRIN
     Dosage: UNK
     Route: 065
  15. ASPIRIN [Concomitant]
     Active Substance: ASPIRIN
     Dosage: UNK

REACTIONS (2)
  - Pulmonary embolism [Recovered/Resolved]
  - Deep vein thrombosis [Recovered/Resolved]

NARRATIVE: CASE EVENT DATE: 20240520
